FAERS Safety Report 8968860 (Version 1)
Quarter: 2012Q4

REPORT INFORMATION
  Report Type: 
  Country: US (occurrence: US)
  Receive Date: 20121218
  Receipt Date: 20121218
  Transmission Date: 20130627
  Serious: No
  Sender: FDA-Public Use
  Company Number: US-BRISTOL-MYERS SQUIBB COMPANY-16368185

PATIENT
  Age: 76 Year
  Sex: Female
  Weight: 65 kg

DRUGS (12)
  1. ABILIFY [Suspect]
     Indication: DEPRESSION
     Dosage: 2 mg and then incrto 5 mg on 8May8
23Jun8:dose redu to 2mg.interp,28Jun08 stop,restarted on 5Feb09
     Dates: start: 20080501, end: 20090723
  2. LISINOPRIL + HCTZ [Suspect]
  3. XANAX [Suspect]
     Indication: ANXIETY
     Dosage: Rest on 09Jun08 2mg,20Jun08.5mg,reduced to 1mg+0.5mg on 27Jun08,Red 0.5mg4Jul08,incr 1mg 18Jul08
     Dates: start: 20080603
  4. NORVASC [Suspect]
     Dates: end: 20080613
  5. LEVOTHYROID [Concomitant]
  6. ALPRAZOLAM [Concomitant]
     Dosage: Regular Alprazolam half tablet QHS
  7. SIMVASTATIN [Concomitant]
  8. CYCLOBENZAPRINE [Concomitant]
     Dosage: At night
  9. DEPAKOTE [Concomitant]
     Dates: start: 20080711, end: 20080717
  10. REMERON [Concomitant]
     Dosage: on 31Jul08 incr to 45mg,Decre to22.1/2mg 09Oc,11.1/1 mg on 25Oct08,Incr on 24Nov22.5mg,29Nov08 45mg
     Dates: start: 20080724
  11. ZYPREXA [Concomitant]
     Dosage: Tab,Increased to 5mg on 09Oct08,Stoped on 20Nov11
     Dates: start: 20080911
  12. TRILAFON [Concomitant]
     Dosage: on 08Jan09 Incr to 4mg,Stop on 05Feb09
     Dates: start: 20081204

REACTIONS (10)
  - Dyspnoea [Recovered/Resolved]
  - Asthenia [Recovered/Resolved]
  - Myalgia [Recovered/Resolved]
  - Fatigue [Recovered/Resolved]
  - Hypotension [Unknown]
  - Manganese decreased [Unknown]
  - Weight decreased [Unknown]
  - Dizziness [Recovered/Resolved]
  - Tremor [Not Recovered/Not Resolved]
  - Insomnia [Recovered/Resolved]
